FAERS Safety Report 9900145 (Version 1)
Quarter: 2014Q1

REPORT INFORMATION
  Report Type: Spontaneous
  Country: AN (occurrence: AN)
  Receive Date: 20140214
  Receipt Date: 20140214
  Transmission Date: 20141002
  Serious: Yes (Death)
  Sender: FDA-Public Use
  Company Number: AN-B.I. PHARMACEUTICALS,INC./RIDGEFIELD-2014-BI-06844CN

PATIENT
  Sex: 0

DRUGS (3)
  1. PRADAX [Suspect]
     Indication: ATRIAL FIBRILLATION
     Dosage: 300 MG
  2. PRADAX [Suspect]
     Dosage: 55 MG
  3. SEVERAL MEDICATIONS [Concomitant]

REACTIONS (2)
  - Myocardial infarction [Fatal]
  - Pulmonary embolism [Fatal]
